FAERS Safety Report 21175549 (Version 1)
Quarter: 2022Q3

REPORT INFORMATION
  Report Type: Spontaneous
  Country: FR (occurrence: FR)
  Receive Date: 20220805
  Receipt Date: 20220805
  Transmission Date: 20221027
  Serious: Yes (Death)
  Sender: FDA-Public Use
  Company Number: None

PATIENT
  Age: 90 Year
  Sex: Female
  Weight: 37 kg

DRUGS (11)
  1. VENLAFAXINE [Suspect]
     Active Substance: VENLAFAXINE HYDROCHLORIDE
     Indication: Depression
     Dosage: UNIT DOSE: 75 MG, FREQUENCY TIME : 12 HRS
     Dates: start: 20220421
  2. OXAZEPAM [Suspect]
     Active Substance: OXAZEPAM
     Indication: Anxiety
     Dosage: 55 MILLIGRAM DAILY; 10 MG 3/D, 50MG 0.5/DAY, FREQUENCY TIME : 1 DAY
     Dates: start: 20220427
  3. MIRTAZAPINE [Suspect]
     Active Substance: MIRTAZAPINE
     Indication: Depression
     Dosage: STRENGTH: 15 MG, FREQUENCY TIME : 1 DAY, UNIT DOSE: 15 MG,
     Dates: start: 20220505
  4. DOLIPRANE [Concomitant]
     Active Substance: ACETAMINOPHEN
     Indication: Pain
     Dosage: STRENGTH: 500 MG
  5. LANSOPRAZOLE VIATRIS [Concomitant]
     Indication: Abdominal pain upper
     Dosage: STRENGTH: 15 MG , UNIT DOSE : 15 MG, FREQUENCY TIME : 1 DAY
  6. TRANSIPEG [Concomitant]
     Indication: Constipation
     Dosage: STRENGTH: 5.9 G IN SACHET
  7. RAMIPRIL [Concomitant]
     Active Substance: RAMIPRIL
     Indication: Cardiovascular disorder
     Dosage: STRENGTH: 2.5 MG, SCORED TABLET, FREQUENCY TIME : 1 DAY, UNIT DOSE: 2.5 MG
  8. LATANOPROST [Concomitant]
     Active Substance: LATANOPROST
     Indication: Product used for unknown indication
     Dosage: STRENGTH 50 MICROGRAMS/ML, EYE DROPS IN SOLUTION IN A SINGLE-DOSE CONTAINER
  9. ELIQUIS [Concomitant]
     Active Substance: APIXABAN
     Indication: Thrombosis prophylaxis
     Dosage: STRENGTH 2.5 MG, UNIT DOSE: 2 DF, FREQUENCY TIME : 12 HRS
  10. FERROUS FUMARATE [Concomitant]
     Active Substance: FERROUS FUMARATE
     Indication: Iron deficiency anaemia
     Dosage: STRENGTH: 66 MG
  11. LEVOTHYROXINE [Concomitant]
     Active Substance: LEVOTHYROXINE
     Indication: Hypothyroidism
     Dosage: STRENGTH:  50 MICROGRAMS, SCORED TABLET, UNIT DOSE: 1 DF, FREQUENCY TIME : 1 DAY

REACTIONS (1)
  - Fall [Fatal]

NARRATIVE: CASE EVENT DATE: 20220508
